FAERS Safety Report 18631051 (Version 1)
Quarter: 2020Q4

REPORT INFORMATION
  Report Type: Spontaneous
  Country: US (occurrence: US)
  Receive Date: 20201217
  Receipt Date: 20201217
  Transmission Date: 20210114
  Serious: No
  Sender: FDA-Public Use
  Company Number: US-ENDO PHARMACEUTICALS INC-2019-111069

PATIENT
  Age: 63 Year
  Sex: Male

DRUGS (3)
  1. XIAFLEX [Suspect]
     Active Substance: COLLAGENASE CLOSTRIDIUM HISTOLYTICUM
     Dosage: 0.58 MG, UNKNOWN (CYCLE 1, INJECTION 1)
     Route: 065
     Dates: start: 201912
  2. XIAFLEX [Suspect]
     Active Substance: COLLAGENASE CLOSTRIDIUM HISTOLYTICUM
     Indication: PEYRONIE^S DISEASE
     Dosage: 0.58 MG, UNKNOWN (CYCLE 2, INJECTION 1 + 2)
     Route: 065
     Dates: start: 201912
  3. XIAFLEX [Suspect]
     Active Substance: COLLAGENASE CLOSTRIDIUM HISTOLYTICUM
     Dosage: 0.58 MG, UNKNOWN (CYCLE 1, INJECTION 2)
     Route: 065
     Dates: start: 201912

REACTIONS (3)
  - Lymphadenopathy [Recovered/Resolved]
  - Penile swelling [Unknown]
  - Penile contusion [Unknown]

NARRATIVE: CASE EVENT DATE: 201912
